FAERS Safety Report 5869096-4 (Version None)
Quarter: 2008Q3

REPORT INFORMATION
  Report Type: 
  Country: None (occurrence: None)
  Receive Date: 20080903
  Receipt Date: 20080825
  Transmission Date: 20090109
  Serious: Yes (Other)
  Sender: FDA-Public Use
  Company Number: US-WYE-H05702708

PATIENT
  Sex: Female
  Weight: 51.5 kg

DRUGS (2)
  1. PREMARIN [Suspect]
     Indication: AMENORRHOEA
     Route: 048
     Dates: start: 20080320, end: 20080611
  2. IBUPROFEN [Concomitant]
     Indication: DRUG USE FOR UNKNOWN INDICATION
     Dosage: DAILY DOSE OF 200 MG-800 MG AS NEEDED
     Route: 065
     Dates: start: 20030101, end: 20080531

REACTIONS (1)
  - ADNEXA UTERI MASS [None]
